FAERS Safety Report 24593804 (Version 1)
Quarter: 2024Q4

REPORT INFORMATION
  Report Type: Spontaneous
  Country: RO (occurrence: RO)
  Receive Date: 20241108
  Receipt Date: 20241108
  Transmission Date: 20250115
  Serious: Yes (Other)
  Sender: ANI
  Company Number: RO-ANIPHARMA-2024-RO-000018

PATIENT
  Age: 74 Year
  Sex: Female

DRUGS (3)
  1. ANASTROZOLE [Suspect]
     Active Substance: ANASTROZOLE
     Indication: Breast cancer
     Dosage: 1 MG, 1X/DAY
     Route: 048
     Dates: start: 202310
  2. IBRANCE [Suspect]
     Active Substance: PALBOCICLIB
     Dosage: 125 MG, 1X/DAY (21 CONSECUTIVE DAYS, 28-DAY CYCLE)
     Route: 048
     Dates: start: 202310
  3. IBANDRONIC ACID [Suspect]
     Active Substance: IBANDRONIC ACID
     Dosage: 6 MG, MONTHLY (ONCE EVERY 28 DAYS)
     Dates: start: 202310

REACTIONS (1)
  - Neutropenia [Unknown]

NARRATIVE: CASE EVENT DATE: 20240501
